FAERS Safety Report 15762809 (Version 2)
Quarter: 2019Q1

REPORT INFORMATION
  Report Type: Spontaneous
  Country: US (occurrence: US)
  Receive Date: 20181226
  Receipt Date: 20190102
  Transmission Date: 20190417
  Serious: Yes (Life-Threatening, Other)
  Sender: FDA-Public Use
  Company Number: US-PFIZER INC-2018524473

PATIENT
  Age: 46 Year
  Sex: Male

DRUGS (4)
  1. FLUDARABINE PHOSPHATE. [Suspect]
     Active Substance: FLUDARABINE PHOSPHATE
     Dosage: UNK, (TWO FURTHER COURSES)
  2. INTERFERON ALFA NOS [Concomitant]
     Active Substance: INTERFERON ALFA-2A OR INTERFERON ALFA-2B
     Dosage: UNK (TWO FURTHER COURSES)
  3. INTERFERON ALFA NOS [Concomitant]
     Active Substance: INTERFERON ALFA-2A OR INTERFERON ALFA-2B
     Indication: MYCOSIS FUNGOIDES
     Dosage: UNK (5 MILLION UNITS/M2, THREE TIMES WEEKLY)
     Route: 058
     Dates: start: 1991
  4. FLUDARABINE PHOSPHATE. [Suspect]
     Active Substance: FLUDARABINE PHOSPHATE
     Indication: MYCOSIS FUNGOIDES
     Dosage: 25 MG/M2, DAILY,EIGHT COURSES FOR 5 DAYS
     Dates: start: 1991

REACTIONS (1)
  - Toxic leukoencephalopathy [Recovering/Resolving]
